FAERS Safety Report 8231091-8 (Version None)
Quarter: 2012Q1

REPORT INFORMATION
  Report Type: 
  Country: None (occurrence: None)
  Receive Date: 20120322
  Receipt Date: 20120322
  Transmission Date: 20120608
  Serious: Yes (Other)
  Sender: FDA-Public Use
  Company Number: None

PATIENT
  Sex: Female
  Weight: 154.67 kg

DRUGS (2)
  1. GABAPENTIN [Suspect]
     Indication: FIBROMYALGIA
     Dosage: 300MG
     Route: 048
  2. GABAPENTIN [Suspect]

REACTIONS (5)
  - AMNESIA [None]
  - SOMNOLENCE [None]
  - DYSARTHRIA [None]
  - OEDEMA PERIPHERAL [None]
  - SWOLLEN TONGUE [None]
